FAERS Safety Report 5908628-4 (Version None)
Quarter: 2008Q3

REPORT INFORMATION
  Report Type: 
  Country: None (occurrence: None)
  Receive Date: 20080929
  Receipt Date: 20080917
  Transmission Date: 20090109
  Serious: Yes (Other)
  Sender: FDA-Public Use
  Company Number: MC200800451

PATIENT
  Age: 75 Year
  Sex: Male

DRUGS (5)
  1. ANGIOMAX [Suspect]
     Indication: PERCUTANEOUS CORONARY INTERVENTION
     Dosage: 0.75 MG/KG, BOLUS, INTRAVENOUS; ANGIOMAX, ANGIOX 1.756 MG/KG, HR, INTRAVENOUS
     Route: 040
     Dates: start: 20080917, end: 20080917
  2. ANGIOMAX [Suspect]
     Indication: PERCUTANEOUS CORONARY INTERVENTION
     Dosage: 0.75 MG/KG, BOLUS, INTRAVENOUS; ANGIOMAX, ANGIOX 1.756 MG/KG, HR, INTRAVENOUS
     Route: 040
     Dates: start: 20080917, end: 20080917
  3. HEPARIN [Suspect]
     Dosage: INTRAVENOUS FLUSH
     Route: 042
     Dates: start: 20080917, end: 20080917
  4. EPTIFIBATIDE (EPTIFIBATIDE) [Concomitant]
  5. ASPIRIN [Concomitant]

REACTIONS (2)
  - CATHETER THROMBOSIS [None]
  - CORONARY ARTERY STENOSIS [None]
